FAERS Safety Report 10230504 (Version 1)
Quarter: 2014Q2

REPORT INFORMATION
  Report Type: Spontaneous
  Country: US (occurrence: US)
  Receive Date: 20140611
  Receipt Date: 20140611
  Transmission Date: 20141212
  Serious: No
  Sender: FDA-Public Use
  Company Number: US-INCYTE CORPORATION-2014IN001046

PATIENT
  Sex: 0

DRUGS (19)
  1. JAKAFI [Suspect]
     Indication: MYELOFIBROSIS
     Dosage: 10 MG, BID
     Route: 048
     Dates: start: 20140408
  2. IRON [Concomitant]
  3. ASPIRIN [Concomitant]
     Dosage: 81 MG, UNK
  4. TRAZODONE [Concomitant]
  5. VITAMIN C                          /00008001/ [Concomitant]
  6. NIACINAMIDE [Concomitant]
  7. DOXYCYCLINE [Concomitant]
  8. PAXIL                              /00830802/ [Concomitant]
  9. LIOTHYRONINE [Concomitant]
  10. POTASSIUM CITRATE [Concomitant]
  11. CALCIUM [Concomitant]
  12. MAGNESIUM [Concomitant]
  13. VITAMIN D                          /00107901/ [Concomitant]
  14. PANTOPRAZOLE [Concomitant]
  15. BENADRYL                           /00000402/ [Concomitant]
  16. ULORIC [Concomitant]
  17. VITAMIN D3 [Concomitant]
  18. CARAFATE [Concomitant]
  19. OXYCODONE [Concomitant]

REACTIONS (4)
  - Pain [Unknown]
  - Abdominal distension [Unknown]
  - Nausea [Unknown]
  - Dyspepsia [Unknown]
